FAERS Safety Report 10541509 (Version 1)
Quarter: 2014Q4

REPORT INFORMATION
  Report Type: Spontaneous
  Country: BR (occurrence: BR)
  Receive Date: 20141024
  Receipt Date: 20141024
  Transmission Date: 20150529
  Serious: Yes (Other)
  Sender: FDA-Public Use
  Company Number: BR-009507513-1410BRA012266

PATIENT
  Age: 20 Year
  Sex: Female
  Weight: 77 kg

DRUGS (1)
  1. MERCILON  CONTI [Suspect]
     Active Substance: DESOGESTREL\ETHINYL ESTRADIOL
     Indication: CONTRACEPTION
     Dosage: 1 DF, QD
     Route: 048
     Dates: end: 2001

REACTIONS (4)
  - Caesarean section [Recovered/Resolved]
  - Drug administration error [Unknown]
  - Unintended pregnancy [Recovered/Resolved]
  - Pre-eclampsia [Recovered/Resolved]

NARRATIVE: CASE EVENT DATE: 20020606
